FAERS Safety Report 8621404-7 (Version None)
Quarter: 2012Q3

REPORT INFORMATION
  Report Type: 
  Country: None (occurrence: None)
  Receive Date: 20120824
  Receipt Date: 20120821
  Transmission Date: 20120928
  Serious: Yes (Other)
  Sender: FDA-Public Use
  Company Number: US-PFIZER INC-2012205036

PATIENT
  Sex: Male

DRUGS (4)
  1. LEVOXYL [Suspect]
     Dosage: 175 UG, UNK
     Dates: end: 20120803
  2. LEVOXYL [Suspect]
     Dosage: 150 UG, UNK
     Dates: start: 20120803
  3. LEVOXYL [Suspect]
     Dosage: 150 UG, UNK
  4. LEVOXYL [Suspect]
     Dosage: UNK

REACTIONS (1)
  - TREMOR [None]
